FAERS Safety Report 23133823 (Version 2)
Quarter: 2023Q4

REPORT INFORMATION
  Report Type: Report from Study
  Country: US (occurrence: US)
  Receive Date: 20231101
  Receipt Date: 20231115
  Transmission Date: 20240110
  Serious: Yes (Hospitalization)
  Sender: FDA-Public Use
  Company Number: US-Eisai Medical Research-EC-2023-148399

PATIENT
  Age: 60 Year
  Sex: Male

DRUGS (12)
  1. LENVIMA [Suspect]
     Active Substance: LENVATINIB
     Indication: Renal cancer
     Route: 048
     Dates: start: 2021, end: 2021
  2. LENVIMA [Suspect]
     Active Substance: LENVATINIB
     Route: 048
     Dates: start: 2021, end: 2021
  3. LENVIMA [Suspect]
     Active Substance: LENVATINIB
     Route: 048
     Dates: start: 20210722, end: 2022
  4. LENVIMA [Suspect]
     Active Substance: LENVATINIB
     Route: 048
     Dates: start: 20220416
  5. LENVIMA [Suspect]
     Active Substance: LENVATINIB
     Dosage: ALTERNATING BETWEEN 10 MG AND 14 MG
     Route: 048
  6. KEYTRUDA [Concomitant]
     Active Substance: PEMBROLIZUMAB
     Indication: Product used for unknown indication
     Dosage: DOSE AND FREQUENCY UNKNOWN
     Route: 041
  7. CARVEDILOL [Concomitant]
     Active Substance: CARVEDILOL
  8. FENOFIBRATE [Concomitant]
     Active Substance: FENOFIBRATE
  9. PEPCID [Concomitant]
     Active Substance: FAMOTIDINE
  10. NIFEDIPINE [Concomitant]
     Active Substance: NIFEDIPINE
  11. ALLOPURINOL [Concomitant]
     Active Substance: ALLOPURINOL
  12. HYDROCHLOROTHIAZIDE [Concomitant]
     Active Substance: HYDROCHLOROTHIAZIDE

REACTIONS (2)
  - Blood pressure increased [Recovering/Resolving]
  - Pleural effusion [Recovering/Resolving]

NARRATIVE: CASE EVENT DATE: 20220101
